FAERS Safety Report 9519417 (Version 3)
Quarter: 2013Q4

REPORT INFORMATION
  Report Type: Spontaneous
  Country: US (occurrence: US)
  Receive Date: 20130912
  Receipt Date: 20131204
  Transmission Date: 20140711
  Serious: Yes (Hospitalization)
  Sender: FDA-Public Use
  Company Number: US-GLAXOSMITHKLINE-A1037703A

PATIENT
  Age: 79 Year
  Sex: Female

DRUGS (2)
  1. ADVAIR [Suspect]
     Indication: RESPIRATORY DISORDER
     Route: 055
     Dates: start: 20091006
  2. VENTOLIN [Suspect]
     Indication: RESPIRATORY DISORDER
     Route: 055
     Dates: start: 20091006

REACTIONS (8)
  - Hypoacusis [Unknown]
  - Ophthalmic herpes zoster [Unknown]
  - Blindness [Unknown]
  - Visual acuity reduced [Unknown]
  - Asthenia [Not Recovered/Not Resolved]
  - Reading disorder [Unknown]
  - Pneumonia [Unknown]
  - Influenza [Unknown]
